FAERS Safety Report 5762002-2 (Version None)
Quarter: 2008Q2

REPORT INFORMATION
  Report Type: 
  Country: None (occurrence: None)
  Receive Date: 20080603
  Receipt Date: 20080520
  Transmission Date: 20081010
  Serious: Yes (Other)
  Sender: FDA-Public Use
  Company Number: AZAFR200800130

PATIENT
  Age: 50 Year
  Sex: Male

DRUGS (7)
  1. VIDAZA [Suspect]
     Indication: ACUTE MYELOID LEUKAEMIA
     Dosage: 75 MG/M2, DAILY, SUBCUTANEOUS
     Route: 058
     Dates: start: 20080301
  2. ROVAMYCINE (SPIRAMYCIN) [Concomitant]
  3. VALACYCLOVIR HCL [Concomitant]
  4. CORTICOSTEROIDS (CORTICOSTEROIDS) [Concomitant]
  5. GRANOCYTE (LENOGRASTIM) [Concomitant]
  6. AUGMENTIN '200' [Concomitant]
  7. AMOXICILLIN [Concomitant]

REACTIONS (4)
  - BLOOD CREATININE INCREASED [None]
  - COMPLICATIONS OF BONE MARROW TRANSPLANT [None]
  - CYTOLYTIC HEPATITIS [None]
  - RENAL FAILURE [None]
